FAERS Safety Report 7544069-4 (Version None)
Quarter: 2011Q2

REPORT INFORMATION
  Report Type: 
  Country: None (occurrence: None)
  Receive Date: 20110613
  Receipt Date: 20051007
  Transmission Date: 20111010
  Serious: Yes (Other)
  Sender: FDA-Public Use
  Company Number: PHHO2005CA16081

PATIENT
  Sex: Female

DRUGS (5)
  1. HYDROCHLOROTHIAZIDE [Concomitant]
  2. FOSAMAX [Concomitant]
  3. RABEPRAZOLE SODIUM [Concomitant]
  4. NADOLOL [Concomitant]
  5. SANDOSTATIN LAR [Suspect]
     Indication: CARCINOID TUMOUR
     Dosage: 20 MG ONCE A MONTH
     Dates: start: 20050519

REACTIONS (3)
  - PAINFUL DEFAECATION [None]
  - ALOPECIA [None]
  - HERPES ZOSTER [None]
